FAERS Safety Report 4328428-9 (Version None)
Quarter: 2004Q1

REPORT INFORMATION
  Report Type: 
  Country: None (occurrence: None)
  Receive Date: 20040331
  Receipt Date: 20040325
  Transmission Date: 20041129
  Serious: Yes (Other)
  Sender: FDA-Public Use
  Company Number: PHNR2004AU00805

PATIENT
  Age: 85 Year
  Sex: Female

DRUGS (1)
  1. LAMISIL [Suspect]
     Route: 048
     Dates: start: 20030101, end: 20030101

REACTIONS (2)
  - LYMPHOMA [None]
  - RASH [None]
